FAERS Safety Report 4935153-X (Version None)
Quarter: 2006Q1

REPORT INFORMATION
  Report Type: 
  Country: None (occurrence: None)
  Receive Date: 20060302
  Receipt Date: 20060217
  Transmission Date: 20060701
  Serious: Yes (Other)
  Sender: FDA-Public Use
  Company Number: 2006025588

PATIENT
  Sex: Male

DRUGS (1)
  1. DETROL LA [Suspect]
     Indication: ILL-DEFINED DISORDER
     Dates: start: 20050101

REACTIONS (2)
  - MACULAR DEGENERATION [None]
  - THERAPY NON-RESPONDER [None]
